FAERS Safety Report 23639133 (Version 1)
Quarter: 2024Q1

REPORT INFORMATION
  Report Type: Spontaneous
  Country: CN (occurrence: CN)
  Receive Date: 20240315
  Receipt Date: 20240315
  Transmission Date: 20240409
  Serious: Yes (Hospitalization)
  Sender: FDA-Public Use
  Company Number: CN-HUTCHMED LIMITED-HMP2024CN00507

PATIENT
  Age: 80 Year
  Sex: Male
  Weight: 60 kg

DRUGS (3)
  1. FRUQUINTINIB [Suspect]
     Active Substance: FRUQUINTINIB
     Indication: Oesophageal carcinoma
     Dosage: 2 MG, QD
     Route: 048
     Dates: start: 20240119, end: 20240207
  2. TISLELIZUMAB [Concomitant]
     Active Substance: TISLELIZUMAB
     Indication: Oesophageal carcinoma
     Dosage: 200 MG, QD
     Route: 041
     Dates: start: 20240119, end: 20240207
  3. PACLITAXEL [Concomitant]
     Active Substance: PACLITAXEL
     Indication: Oesophageal carcinoma
     Dosage: 200 MILLIGRAM
     Route: 041
     Dates: start: 20240207, end: 20240207

REACTIONS (4)
  - Cough [Recovering/Resolving]
  - Productive cough [Recovering/Resolving]
  - Off label use [Unknown]
  - Underdose [Unknown]

NARRATIVE: CASE EVENT DATE: 20240119
